FAERS Safety Report 10755501 (Version 1)
Quarter: 2015Q1

REPORT INFORMATION
  Report Type: Spontaneous
  Country: US (occurrence: None)
  Receive Date: 20150123
  Receipt Date: 20150123
  Transmission Date: 20150721
  Serious: No
  Sender: FDA-Public Use
  Company Number: 2014TUS008490

PATIENT
  Age: 52 Year
  Sex: Female
  Weight: 77.6 kg

DRUGS (1)
  1. ENTYVIO [Suspect]
     Active Substance: VEDOLIZUMAB
     Indication: CROHN^S DISEASE
     Dosage: 4.8ML STERILE H20 IN 250ML
     Route: 042
     Dates: start: 20140801, end: 20140801

REACTIONS (2)
  - Clostridium difficile colitis [None]
  - Gastrointestinal motility disorder [None]

NARRATIVE: CASE EVENT DATE: 201408
